FAERS Safety Report 8402437-2 (Version None)
Quarter: 2012Q2

REPORT INFORMATION
  Report Type: 
  Country: None (occurrence: None)
  Receive Date: 20120601
  Receipt Date: 20120525
  Transmission Date: 20120825
  Serious: Yes (Other)
  Sender: FDA-Public Use
  Company Number: CA-B.I. PHARMACEUTICALS,INC./RIDGEFIELD-2012-CN-00978CN

PATIENT
  Age: 75 Year
  Sex: Female

DRUGS (3)
  1. ANTIHYPERTENSIVE [Concomitant]
     Indication: HYPERTENSION
  2. PRADAXA [Suspect]
     Indication: ATRIAL FIBRILLATION
     Dosage: 220 MG
  3. FACIAL COSMETIC [Concomitant]
     Route: 061

REACTIONS (1)
  - TOXIC EPIDERMAL NECROLYSIS [None]
